FAERS Safety Report 9003460 (Version 1)
Quarter: 2013Q1

REPORT INFORMATION
  Report Type: Spontaneous
  Country: GB (occurrence: GB)
  Receive Date: 20130108
  Receipt Date: 20130108
  Transmission Date: 20140127
  Serious: Yes (Other)
  Sender: FDA-Public Use
  Company Number: PHFR2012GB006671

PATIENT
  Sex: Female

DRUGS (3)
  1. DICLOFENAC [Suspect]
     Dosage: UNK UKN, UNK
     Route: 065
  2. LAMOTRIGINE [Suspect]
     Dosage: 400 MG, 2X/DAY
     Route: 065
  3. LEVETIRACETAM [Suspect]
     Dosage: 1500 MG, 2X/DAY
     Route: 065

REACTIONS (2)
  - Weight increased [Unknown]
  - Hypertension [Unknown]
